FAERS Safety Report 5578666-2 (Version None)
Quarter: 2008Q1

REPORT INFORMATION
  Report Type: 
  Country: None (occurrence: None)
  Receive Date: 20080102
  Receipt Date: 20071226
  Transmission Date: 20080703
  Serious: Yes (Other)
  Sender: FDA-Public Use
  Company Number: JP-JNJFOC-20071206246

PATIENT
  Sex: Male

DRUGS (1)
  1. DOXIL [Suspect]
     Indication: KAPOSI'S SARCOMA
     Route: 042

REACTIONS (4)
  - CONJUNCTIVAL HYPERAEMIA [None]
  - EYELID OEDEMA [None]
  - NEUTROPHIL COUNT DECREASED [None]
  - WHITE BLOOD CELL COUNT DECREASED [None]
